FAERS Safety Report 14559097 (Version 3)
Quarter: 2018Q4

REPORT INFORMATION
  Report Type: Report from Study
  Country: US (occurrence: US)
  Receive Date: 20180221
  Receipt Date: 20181031
  Transmission Date: 20190204
  Serious: Yes (Hospitalization)
  Sender: FDA-Public Use
  Company Number: US-ACTELION-A-US2017-150530

PATIENT
  Age: 19 Year
  Sex: Female
  Weight: 71.2 kg

DRUGS (5)
  1. VELETRI [Suspect]
     Active Substance: EPOPROSTENOL
     Indication: PULMONARY HYPERTENSION
     Dosage: 8 NG/KG, PER MIN
     Route: 042
  2. OPSUMIT [Concomitant]
     Active Substance: MACITENTAN
  3. VELETRI [Suspect]
     Active Substance: EPOPROSTENOL
     Dosage: UNK
     Route: 042
  4. FUROSEMIDE. [Concomitant]
     Active Substance: FUROSEMIDE
     Dosage: UNK
     Dates: start: 20170308
  5. ADCIRCA [Concomitant]
     Active Substance: TADALAFIL

REACTIONS (19)
  - Weight increased [Unknown]
  - Dyspnoea exertional [Unknown]
  - Fatigue [Not Recovered/Not Resolved]
  - Device defective [Unknown]
  - Catheter placement [Unknown]
  - Palpitations [Unknown]
  - Swelling face [Unknown]
  - Asthenopia [Unknown]
  - Malaise [Recovered/Resolved]
  - Peripheral swelling [Unknown]
  - Diarrhoea [Unknown]
  - Product dispensing error [Recovered/Resolved]
  - Pain in jaw [Not Recovered/Not Resolved]
  - Fluid retention [Unknown]
  - Accidental overdose [Recovered/Resolved]
  - Hypertension [Recovered/Resolved]
  - Migraine [Recovered/Resolved]
  - Headache [Unknown]
  - Vomiting [Recovered/Resolved]

NARRATIVE: CASE EVENT DATE: 20170302
